FAERS Safety Report 8611569-5 (Version None)
Quarter: 2012Q3

REPORT INFORMATION
  Report Type: 
  Country: None (occurrence: None)
  Receive Date: 20120822
  Receipt Date: 20120814
  Transmission Date: 20120928
  Serious: Yes (Congenital Anomaly)
  Sender: FDA-Public Use
  Company Number: PHHY2012DK070240

PATIENT
  Sex: Female
  Weight: 3.224 kg

DRUGS (1)
  1. CITALOPRAM HYDROBROMIDE [Suspect]
     Indication: ANXIETY
     Dosage: 20 MG, QD
     Route: 064

REACTIONS (4)
  - IRIS COLOBOMA [None]
  - COLOBOMA [None]
  - FOETAL EXPOSURE DURING PREGNANCY [None]
  - BLINDNESS [None]
